FAERS Safety Report 12190468 (Version 1)
Quarter: 2016Q1

REPORT INFORMATION
  Report Type: Other
  Country: NL (occurrence: NL)
  Receive Date: 20160318
  Receipt Date: 20160318
  Transmission Date: 20160526
  Serious: Yes (Life-Threatening, Hospitalization)
  Sender: FDA-Public Use
  Company Number: NL-LUPIN PHARMACEUTICALS INC.-2016-01030

PATIENT
  Age: 38 Year
  Sex: Male

DRUGS (2)
  1. NORTRIPTYLINE [Suspect]
     Active Substance: NORTRIPTYLINE
     Indication: PRODUCT USED FOR UNKNOWN INDICATION
     Route: 048
  2. ZOLPIDEM [Suspect]
     Active Substance: ZOLPIDEM\ZOLPIDEM TARTRATE
     Indication: PRODUCT USED FOR UNKNOWN INDICATION
     Route: 048

REACTIONS (10)
  - Somnolence [Recovering/Resolving]
  - Ventricular arrhythmia [Recovering/Resolving]
  - Obstructive airways disorder [Recovering/Resolving]
  - Hypotension [Recovering/Resolving]
  - Hyperthermia [Recovering/Resolving]
  - Suicide attempt [Unknown]
  - Overdose [Unknown]
  - Hepatotoxicity [Recovered/Resolved]
  - Amnesia [Recovering/Resolving]
  - Seizure [Recovering/Resolving]
